FAERS Safety Report 8924753 (Version 3)
Quarter: 2013Q1

REPORT INFORMATION
  Report Type: Spontaneous
  Country: US (occurrence: US)
  Receive Date: 20121126
  Receipt Date: 20130226
  Transmission Date: 20140127
  Serious: No
  Sender: FDA-Public Use
  Company Number: US-PFIZER INC-2012292518

PATIENT
  Age: 70 Year
  Sex: Female
  Weight: 70.75 kg

DRUGS (6)
  1. SUTENT [Suspect]
     Indication: METASTATIC RENAL CELL CARCINOMA
     Dosage: 50 MG, CYCLIC, FIRST 42 DAY CYCLE, 4 WEEKS ON/2 WEEKS OFF
     Dates: start: 20121024
  2. SUTENT [Suspect]
     Dosage: 50 MG, CYCLIC, THIRD 42 DAY CYCLE
     Dates: start: 20130115
  3. DEXAMETHASONE [Concomitant]
     Dosage: 2 MG 1X/DAY, ONE-HALF OF DEXAMETHASONE 4MG
     Dates: start: 20121024
  4. ACTONEL [Concomitant]
     Dosage: UNK, WEEKLY
  5. AMITRIPTYLINE [Concomitant]
     Dosage: UNK
  6. PREVACID [Concomitant]
     Dosage: UNK, 1X/DAY

REACTIONS (8)
  - Body height decreased [Unknown]
  - Weight decreased [Unknown]
  - Fatigue [Unknown]
  - Oral pain [Recovered/Resolved]
  - Tongue disorder [Not Recovered/Not Resolved]
  - Dysgeusia [Unknown]
  - Blood pressure increased [Unknown]
  - Memory impairment [Unknown]
